FAERS Safety Report 19006829 (Version 6)
Quarter: 2022Q1

REPORT INFORMATION
  Report Type: Spontaneous
  Country: GB (occurrence: GB)
  Receive Date: 20210315
  Receipt Date: 20220302
  Transmission Date: 20220423
  Serious: Yes (Hospitalization, Other)
  Sender: FDA-Public Use
  Company Number: GB-GSKCCFEMEA-CASE-01147573_AE-40744

PATIENT
  Age: 60 Year
  Sex: Female

DRUGS (3)
  1. IBUPROFEN [Suspect]
     Active Substance: IBUPROFEN
     Indication: Influenza like illness
     Dosage: UNK
     Route: 065
     Dates: start: 2020
  2. ACETAMINOPHEN [Suspect]
     Active Substance: ACETAMINOPHEN
     Indication: Influenza like illness
     Dosage: UNK
     Route: 065
     Dates: start: 2020
  3. ENGERIX-B [Suspect]
     Active Substance: HEPATITIS B VIRUS SUBTYPE ADW2 HBSAG SURFACE PROTEIN ANTIGEN
     Indication: Prophylaxis
     Dosage: UNK
     Route: 065
     Dates: start: 20200729

REACTIONS (8)
  - Vertigo [Unknown]
  - Pain in extremity [Unknown]
  - Influenza like illness [Unknown]
  - Feeling hot [Unknown]
  - Hyperhidrosis [Unknown]
  - Nausea [Unknown]
  - Sleep disorder [Unknown]
  - Drug ineffective [Unknown]

NARRATIVE: CASE EVENT DATE: 20200701
